FAERS Safety Report 6124070-8 (Version None)
Quarter: 2009Q1

REPORT INFORMATION
  Report Type: 
  Country: None (occurrence: None)
  Receive Date: 20090319
  Receipt Date: 20090311
  Transmission Date: 20090719
  Serious: Yes (Disabling)
  Sender: FDA-Public Use
  Company Number: PHHY2009FR09215

PATIENT
  Sex: Female

DRUGS (4)
  1. ZOMETA [Suspect]
     Indication: MULTIPLE MYELOMA
     Dosage: UNK
     Route: 042
     Dates: start: 20030101, end: 20070301
  2. THALIDOMIDE [Concomitant]
     Dosage: UNK
  3. COZAAR [Concomitant]
  4. PREVISCAN [Concomitant]

REACTIONS (4)
  - IMPAIRED HEALING [None]
  - OSTEONECROSIS [None]
  - OSTEOTOMY [None]
  - TOOTH EXTRACTION [None]
